APPROVED DRUG PRODUCT: SIMVASTATIN
Active Ingredient: SIMVASTATIN
Strength: 80MG
Dosage Form/Route: TABLET;ORAL
Application: A076685 | Product #005
Applicant: WATSON LABORATORIES INC AN INDIRECT WHOLLY OWNED SUB OF TEVA PHARMACEUTICALS USA INC
Approved: Dec 20, 2006 | RLD: No | RS: No | Type: DISCN